FAERS Safety Report 21522558 (Version 1)
Quarter: 2022Q4

REPORT INFORMATION
  Report Type: Report from Study
  Country: US (occurrence: US)
  Receive Date: 20221029
  Receipt Date: 20221029
  Transmission Date: 20230113
  Serious: No
  Sender: FDA-Public Use
  Company Number: US-ABBVIE-4177320

PATIENT
  Age: 71 Year
  Sex: Female

DRUGS (13)
  1. VENCLEXTA [Suspect]
     Active Substance: VENETOCLAX
     Indication: B-cell small lymphocytic lymphoma
     Route: 048
  2. METFORMIN, [Concomitant]
     Indication: Product used for unknown indication
  3. VALSARTAN, [Concomitant]
     Indication: Product used for unknown indication
  4. LORAZEPAM, [Concomitant]
     Indication: Product used for unknown indication
  5. ALLOPURINOL, [Concomitant]
     Indication: Product used for unknown indication
  6. AMLODIPINE, [Concomitant]
     Indication: Product used for unknown indication
  7. OBINUTUZUMAB, [Concomitant]
     Indication: Product used for unknown indication
  8. ACETAMINOPHEN, [Concomitant]
     Indication: Product used for unknown indication
  9. ECOTRIN, [Concomitant]
     Indication: Product used for unknown indication
  10. ATORVASTATIN, [Concomitant]
     Indication: Product used for unknown indication
  11. VITAMIN D2 [Concomitant]
     Active Substance: ERGOCALCIFEROL
     Indication: Product used for unknown indication
  12. DIPHENHYDRAMINE, [Concomitant]
     Indication: Product used for unknown indication
  13. NEBIVOLOL, [Concomitant]
     Indication: Product used for unknown indication

REACTIONS (1)
  - COVID-19 [Unknown]

NARRATIVE: CASE EVENT DATE: 20220901
